FAERS Safety Report 6741878-6 (Version None)
Quarter: 2010Q2

REPORT INFORMATION
  Report Type: 
  Country: None (occurrence: None)
  Receive Date: 20100526
  Receipt Date: 20100519
  Transmission Date: 20101027
  Serious: Yes (Death)
  Sender: FDA-Public Use
  Company Number: A0790525A

PATIENT
  Age: 72 Year
  Sex: Male

DRUGS (2)
  1. AVANDIA [Suspect]
     Route: 048
     Dates: start: 20030106, end: 20061021
  2. AVANDAMET [Suspect]
     Dates: start: 20030106, end: 20061021

REACTIONS (2)
  - DEATH [None]
  - MYOCARDIAL INFARCTION [None]
